FAERS Safety Report 7346920-X (Version None)
Quarter: 2011Q1

REPORT INFORMATION
  Report Type: 
  Country: None (occurrence: None)
  Receive Date: 20110310
  Receipt Date: 20110310
  Transmission Date: 20110831
  Serious: Yes (Hospitalization)
  Sender: FDA-Public Use
  Company Number: None

PATIENT
  Sex: Male
  Weight: 90.7194 kg

DRUGS (1)
  1. LUBRICATING JELLY, TRIAD [Suspect]
     Indication: BLADDER CATHETERISATION
     Dosage: STERILE ALL OF 2010
     Dates: start: 20091120

REACTIONS (1)
  - URINARY TRACT INFECTION [None]
